FAERS Safety Report 4287790-6 (Version None)
Quarter: 2004Q1

REPORT INFORMATION
  Report Type: 
  Country: None (occurrence: None)
  Receive Date: 20040209
  Receipt Date: 20030924
  Transmission Date: 20041129
  Serious: Yes (Other)
  Sender: FDA-Public Use
  Company Number: US-GLAXOSMITHKLINE-A0427381A

PATIENT
  Sex: Female

DRUGS (1)
  1. PAXIL [Suspect]
     Dosage: 25MG UNKNOWN
     Route: 048
     Dates: start: 20030101

REACTIONS (7)
  - ADVERSE EVENT [None]
  - BURNING SENSATION [None]
  - CRYING [None]
  - DRUG WITHDRAWAL SYNDROME [None]
  - HYPERSENSITIVITY [None]
  - PRURITUS [None]
  - SKIN ULCER [None]
